FAERS Safety Report 9901716 (Version 2)
Quarter: 2016Q4

REPORT INFORMATION
  Report Type: Report from Study
  Country: CA (occurrence: CA)
  Receive Date: 20140217
  Receipt Date: 20161216
  Transmission Date: 20170207
  Serious: Yes (Life-Threatening, Hospitalization, Other)
  Sender: FDA-Public Use
  Company Number: PHHY2014CA017930

PATIENT
  Sex: Female

DRUGS (1)
  1. ZOMETA [Suspect]
     Active Substance: ZOLEDRONIC ACID
     Indication: BREAST CANCER
     Dosage: 4 MG, QMO EVERY 4 WEEKS
     Route: 042
     Dates: start: 20140814

REACTIONS (2)
  - Feeling abnormal [Unknown]
  - Bone marrow disorder [Unknown]

NARRATIVE: CASE EVENT DATE: 2016
